FAERS Safety Report 4842070-2 (Version None)
Quarter: 2005Q4

REPORT INFORMATION
  Report Type: 
  Country: None (occurrence: None)
  Receive Date: 20051130
  Receipt Date: 20051117
  Transmission Date: 20060501
  Serious: Yes (Other)
  Sender: FDA-Public Use
  Company Number: PHNU2005DE03804

PATIENT
  Sex: Male

DRUGS (1)
  1. GLEEVEC [Suspect]
     Dosage: 400 MG, QD
     Route: 048
     Dates: start: 20051001

REACTIONS (4)
  - PLATELET COUNT INCREASED [None]
  - POLYCYTHAEMIA VERA [None]
  - RED BLOOD CELL COUNT INCREASED [None]
  - WHITE BLOOD CELL COUNT INCREASED [None]
